FAERS Safety Report 7855000-6 (Version None)
Quarter: 2011Q4

REPORT INFORMATION
  Report Type: 
  Country: None (occurrence: None)
  Receive Date: 20111026
  Receipt Date: 20111020
  Transmission Date: 20120403
  Serious: Yes (Death, Hospitalization)
  Sender: FDA-Public Use
  Company Number: TW-CELGENEUS-153-CCAZA-11100654

PATIENT
  Sex: Male
  Weight: 75.9 kg

DRUGS (2)
  1. AZACITIDINE [Suspect]
     Dosage: 138 MILLIGRAM/SQ. METER
     Route: 058
     Dates: start: 20110920, end: 20110926
  2. AZACITIDINE [Suspect]
     Indication: MYELODYSPLASTIC SYNDROME
     Dosage: 138 MILLIGRAM/SQ. METER
     Route: 058
     Dates: start: 20110725, end: 20110731

REACTIONS (4)
  - LUNG INFECTION [None]
  - FEBRILE NEUTROPENIA [None]
  - PYREXIA [None]
  - HEPATIC FAILURE [None]
